FAERS Safety Report 4877876-7 (Version None)
Quarter: 2006Q1

REPORT INFORMATION
  Report Type: 
  Country: None (occurrence: None)
  Receive Date: 20060109
  Receipt Date: 20051228
  Transmission Date: 20060701
  Serious: Yes (Hospitalization)
  Sender: FDA-Public Use
  Company Number: 28309

PATIENT
  Age: 87 Year
  Sex: Female

DRUGS (7)
  1. DISCOTRINE (GLYCERYL TRINITRATE) [Suspect]
     Dosage: TRANSDERMAL
     Route: 062
     Dates: end: 20051130
  2. FOSAMAX [Suspect]
     Dosage: ORAL
     Route: 048
     Dates: end: 20051120
  3. DUSPATALIN (MEBEVERINE HYDROCHLORIDE) [Suspect]
     Dosage: ORAL
     Route: 048
     Dates: end: 20051120
  4. ESBERIVEN (MELILOT, HEPARIN SODIUM) [Suspect]
     Dates: end: 20051120
  5. SPASFON (PHLOROGLUCINOL, TRIMETHYLPHLOROGLUCINOL) [Suspect]
     Dates: end: 20051120
  6. FUROSEMIDE [Concomitant]
     Dosage: ORAL
     Route: 048
     Dates: end: 20051130
  7. FUROSEMIDE [Concomitant]
     Dosage: ORAL
     Route: 048
     Dates: start: 20051130

REACTIONS (7)
  - ASTHENIA [None]
  - DISEASE RECURRENCE [None]
  - DIZZINESS [None]
  - DYSPNOEA EXERTIONAL [None]
  - GASTRITIS EROSIVE [None]
  - MICROCYTIC ANAEMIA [None]
  - TREATMENT NONCOMPLIANCE [None]
